FAERS Safety Report 15518582 (Version 9)
Quarter: 2019Q2

REPORT INFORMATION
  Report Type: Spontaneous
  Country: US (occurrence: US)
  Receive Date: 20181017
  Receipt Date: 20190506
  Transmission Date: 20190711
  Serious: Yes (Hospitalization)
  Sender: FDA-Public Use
  Company Number: US-ACTELION-A-NJ2018-179816

PATIENT
  Age: 45 Year
  Sex: Male
  Weight: 106.58 kg

DRUGS (4)
  1. VELETRI [Suspect]
     Active Substance: EPOPROSTENOL
     Dosage: 5 NG/KG, PER MIN
     Route: 042
     Dates: end: 201904
  2. OPSUMIT [Suspect]
     Active Substance: MACITENTAN
     Indication: PULMONARY ARTERIAL HYPERTENSION
     Dosage: 10 MG, QD
     Route: 048
     Dates: start: 20180822
  3. VELETRI [Suspect]
     Active Substance: EPOPROSTENOL
     Indication: PULMONARY ARTERIAL HYPERTENSION
     Dosage: 6 NG/KG, PER MIN
     Route: 042
  4. UPTRAVI [Concomitant]
     Active Substance: SELEXIPAG

REACTIONS (22)
  - Injection site pain [Unknown]
  - Fatigue [Unknown]
  - Product administration error [Unknown]
  - Palpitations [Recovering/Resolving]
  - Pain [Unknown]
  - Immunisation [Unknown]
  - Headache [Recovered/Resolved]
  - Device dislocation [Unknown]
  - Arthralgia [Unknown]
  - Radiculopathy [Unknown]
  - Allergy to vaccine [Unknown]
  - Nausea [Recovering/Resolving]
  - Back pain [Unknown]
  - Ventricular extrasystoles [Recovering/Resolving]
  - Pyrexia [Unknown]
  - Pain in extremity [Unknown]
  - Chills [Unknown]
  - Hypoaesthesia [Unknown]
  - Dyspnoea exertional [Unknown]
  - Catheter site pain [Unknown]
  - Catheter placement [Unknown]
  - Dizziness [Recovering/Resolving]

NARRATIVE: CASE EVENT DATE: 201809
